FAERS Safety Report 8265673-4 (Version None)
Quarter: 2012Q2

REPORT INFORMATION
  Report Type: 
  Country: None (occurrence: None)
  Receive Date: 20120403
  Receipt Date: 20120322
  Transmission Date: 20120825
  Serious: Yes (Other)
  Sender: FDA-Public Use
  Company Number: AUR-APL-2012-01548

PATIENT
  Age: 67 Year
  Sex: Male
  Weight: 73 kg

DRUGS (5)
  1. SIMVASTATIN [Suspect]
     Indication: BLOOD CHOLESTEROL INCREASED
     Dosage: 40 MG (40 MG, 1 IN 1 D), ORAL
     Route: 048
     Dates: start: 20060101
  2. GAVISCON (GAVISCON /00237601/) [Concomitant]
  3. LANSOPRAZOLE [Concomitant]
  4. NORTRIPTYLINE HCL [Concomitant]
  5. PERINDOPRIL ERBUMINE [Concomitant]

REACTIONS (4)
  - COGNITIVE DISORDER [None]
  - BLOOD UREA ABNORMAL [None]
  - APHASIA [None]
  - IMPAIRED FASTING GLUCOSE [None]
